FAERS Safety Report 8521030-4 (Version None)
Quarter: 2012Q3

REPORT INFORMATION
  Report Type: 
  Country: None (occurrence: None)
  Receive Date: 20120719
  Receipt Date: 20120711
  Transmission Date: 20120928
  Serious: Yes (Death, Hospitalization)
  Sender: FDA-Public Use
  Company Number: FR-009507513-2012SP023254

PATIENT

DRUGS (3)
  1. REBETOL [Suspect]
     Indication: HEPATITIS C
     Dosage: 600 MG, QD
     Dates: start: 20110518, end: 20110927
  2. VICTRELIS [Suspect]
     Indication: HEPATITIS C
     Dosage: 800 MG, TID
     Dates: start: 20110712, end: 20110927
  3. VIRAFERONPEG [Suspect]
     Indication: HEPATITIS C
     Dosage: 80 A?G, QW
     Dates: start: 20110518, end: 20110927

REACTIONS (1)
  - ANAEMIA [None]
